FAERS Safety Report 11289145 (Version 1)
Quarter: 2015Q3

REPORT INFORMATION
  Report Type: Spontaneous
  Country: US (occurrence: US)
  Receive Date: 20150721
  Receipt Date: 20150721
  Transmission Date: 20151125
  Serious: Yes (Other)
  Sender: FDA-Public Use
  Company Number: PHHY2015US084361

PATIENT
  Age: 59 Year
  Sex: Female

DRUGS (3)
  1. OXALIPLATIN. [Suspect]
     Active Substance: OXALIPLATIN
     Indication: COLORECTAL CANCER STAGE III
     Dosage: 100 MG/M2, EVERY 2 WEEKS
     Route: 065
  2. LEUCOVORIN. [Concomitant]
     Active Substance: LEUCOVORIN
     Indication: COLORECTAL CANCER STAGE III
     Route: 065
  3. 5 FLUORO URACIL [Concomitant]
     Active Substance: FLUOROURACIL
     Indication: COLORECTAL CANCER STAGE III
     Route: 065

REACTIONS (7)
  - Haemorrhoids [Unknown]
  - Splenomegaly [Unknown]
  - Thrombocytopenia [Unknown]
  - Venoocclusive liver disease [Unknown]
  - Portal hypertension [Unknown]
  - Hepatic congestion [Unknown]
  - Varicose veins of abdominal wall [Unknown]
